FAERS Safety Report 7673810-5 (Version None)
Quarter: 2011Q3

REPORT INFORMATION
  Report Type: 
  Country: None (occurrence: None)
  Receive Date: 20110810
  Receipt Date: 20110727
  Transmission Date: 20111222
  Serious: Yes (Other)
  Sender: FDA-Public Use
  Company Number: PHHY2011RO67475

PATIENT
  Sex: Male

DRUGS (6)
  1. NEBIVOLOL HCL [Suspect]
     Indication: HYPERTENSION
     Dosage: UNK UKN, UNK
     Dates: start: 20090202, end: 20090902
  2. DIUREX [Concomitant]
     Dosage: 50 MG PER DAY
  3. TRENTAL [Concomitant]
     Dosage: 400 MG, BID
  4. EXFORGE [Suspect]
     Indication: HYPERTENSION
     Dosage: 1 DF (160MG OF VALS AND 5MG OF AMLO) PER DAY
     Dates: start: 20090202, end: 20090902
  5. DIGOXIN [Concomitant]
     Dosage: 0.5 DF PER DAY
  6. LESCOL [Concomitant]
     Dosage: 80 MG PER DAY

REACTIONS (2)
  - CYANOSIS [None]
  - FACE OEDEMA [None]
